FAERS Safety Report 4391197-0 (Version None)
Quarter: 2004Q2

REPORT INFORMATION
  Report Type: 
  Country: None (occurrence: None)
  Receive Date: 20040621
  Receipt Date: 20011227
  Transmission Date: 20050107
  Serious: Yes (Death)
  Sender: FDA-Public Use
  Company Number: 2015463

PATIENT
  Age: 46 Year
  Sex: Male
  Weight: 90.9 kg

DRUGS (8)
  1. OXYCODONE HCL [Suspect]
     Dosage: UNK MG, ORAL
     Route: 048
  2. DIPHENHYDRAMINE HCL [Suspect]
     Dosage: UNK MG, ORAL
     Route: 048
  3. THEOPHYLLINE [Suspect]
  4. ZOLPIDEM (ZOLPIDEM) [Suspect]
     Dosage: UNK MG, ORAL
     Route: 048
  5. PAROXETINE HCL [Suspect]
     Dosage: UNK MG, ORAL
     Route: 048
  6. BENZATROPINE (BENZATROPINE) [Suspect]
     Dosage: UNK MG, ORAL
     Route: 048
  7. VALPROIC ACID [Suspect]
     Dosage: UNK MG,  ORAL
     Route: 048
  8. CAFFEINE (CAFFEINE) [Suspect]
     Dosage: UNK  MG, ORAL
     Route: 048

REACTIONS (1)
  - ACCIDENTAL OVERDOSE [None]
